FAERS Safety Report 15000818 (Version 1)
Quarter: 2018Q2

REPORT INFORMATION
  Report Type: Spontaneous
  Country: CH (occurrence: CH)
  Receive Date: 20180612
  Receipt Date: 20180612
  Transmission Date: 20180711
  Serious: Yes (Other)
  Sender: FDA-Public Use
  Company Number: CH-PFIZER INC-2017462081

PATIENT
  Sex: Male

DRUGS (5)
  1. ORLISTAT. [Suspect]
     Active Substance: ORLISTAT
     Dosage: UNK
     Route: 064
     Dates: end: 20170906
  2. TRAUMANASE [Suspect]
     Active Substance: BROMELAINS
     Dosage: UNK
     Route: 064
     Dates: end: 20170906
  3. ALDACTONE [Suspect]
     Active Substance: SPIRONOLACTONE
     Dosage: 50 MG, 1X/DAY
     Route: 064
     Dates: end: 20170906
  4. METFIN [Suspect]
     Active Substance: METFORMIN HYDROCHLORIDE
     Dosage: 500 MG, 2X/DAY
     Route: 064
     Dates: end: 20170906
  5. GEVILON [Suspect]
     Active Substance: GEMFIBROZIL
     Dosage: UNK
     Route: 064
     Dates: end: 20170906

REACTIONS (2)
  - Maternal exposure during pregnancy [Not Recovered/Not Resolved]
  - Microcephaly [Not Recovered/Not Resolved]
